FAERS Safety Report 9991378 (Version 1)
Quarter: 2014Q1

REPORT INFORMATION
  Report Type: Report from Study
  Country: US (occurrence: US)
  Receive Date: 20140310
  Receipt Date: 20140310
  Transmission Date: 20141002
  Serious: No
  Sender: FDA-Public Use
  Company Number: US-ABBVIE-13P-163-1129731-00

PATIENT
  Age: 50 Year
  Sex: Female

DRUGS (10)
  1. HUMIRA [Suspect]
     Indication: RHEUMATOID ARTHRITIS
     Dates: start: 20130312
  2. GLIPIZIDE [Concomitant]
     Indication: DIABETES MELLITUS
  3. SULFASALAZINE [Concomitant]
     Indication: ARTHRITIS
  4. HYDROXYCHLOROQUINE [Concomitant]
     Indication: ARTHRITIS
  5. NIFEDIPINE [Concomitant]
     Indication: HYPERTENSION
  6. ATENOLOL [Concomitant]
     Indication: HYPERTENSION
  7. LISINOPRIL [Concomitant]
     Indication: HYPERTENSION
  8. LIPITOR [Concomitant]
     Indication: BLOOD CHOLESTEROL
  9. PANTOPRAZOLE [Concomitant]
     Indication: GASTROOESOPHAGEAL REFLUX DISEASE
  10. ASPIRIN [Concomitant]
     Indication: PRODUCT USED FOR UNKNOWN INDICATION

REACTIONS (1)
  - Furuncle [Not Recovered/Not Resolved]
